FAERS Safety Report 16097665 (Version 1)
Quarter: 2019Q1

REPORT INFORMATION
  Report Type: Spontaneous
  Country: US (occurrence: US)
  Receive Date: 20190320
  Receipt Date: 20190320
  Transmission Date: 20190418
  Serious: Yes (Hospitalization)
  Sender: FDA-Public Use
  Company Number: US-B.I. PHARMACEUTICALS,INC./RIDGEFIELD-2019-BI-011408

PATIENT
  Sex: Male

DRUGS (4)
  1. ALBUTEROL SULFATE. [Concomitant]
     Active Substance: ALBUTEROL SULFATE
     Indication: CHRONIC OBSTRUCTIVE PULMONARY DISEASE
     Dosage: FOUR TIMES A DAY AS NEEDED;  FORM STRENGTH: 2.5MCG/0.5ML/5%; FORMULATION: INHALATION SOLUTION
     Route: 055
     Dates: start: 2009
  2. SPIRIVA RESPIMAT [Suspect]
     Active Substance: TIOTROPIUM BROMIDE
     Indication: CHRONIC OBSTRUCTIVE PULMONARY DISEASE
     Dosage: STRENGTH: 2.5 MCG; FORM: INHALATION SPRAY? ADMINISTRATION CORRECT? NR ?ACTION: DOSE NOT CHANGED
     Route: 055
     Dates: start: 201703
  3. BROVANA [Concomitant]
     Active Substance: ARFORMOTEROL TARTRATE
     Indication: CHRONIC OBSTRUCTIVE PULMONARY DISEASE
     Dosage: BID;  FORM STRENGTH: 5MCG/2ML; FORMULATION: INHALATION SOLUTION
     Route: 055
     Dates: start: 2014
  4. BUDESONIDE. [Concomitant]
     Active Substance: BUDESONIDE
     Indication: PRODUCT USED FOR UNKNOWN INDICATION
     Dosage: BID;  FORM STRENGTH: 0.5MG/2ML; FORMULATION: INHALATION AEROSOL
     Route: 055
     Dates: start: 2014

REACTIONS (3)
  - Pneumonia [Unknown]
  - Cardiac failure congestive [Unknown]
  - Chronic obstructive pulmonary disease [Unknown]
